FAERS Safety Report 16955582 (Version 1)
Quarter: 2019Q4

REPORT INFORMATION
  Report Type: Spontaneous
  Country: US (occurrence: US)
  Receive Date: 20190903
  Receipt Date: 20190903
  Transmission Date: 20200122
  Serious: Yes (Other)
  Sender: FDA-Public Use
  Company Number: None

PATIENT
  Age: 47 Year
  Sex: Female
  Weight: 78.91 kg

DRUGS (1)
  1. CREST WHITENING SYSTEMS STRIPS/WHITESTRIP 3D WHITE [Suspect]
     Active Substance: HYDROGEN PEROXIDE
     Indication: DENTAL COSMETIC PROCEDURE
     Dosage: ?          OTHER ROUTE:INTRAORAL?
     Dates: start: 2015, end: 2015

REACTIONS (10)
  - Hyperaesthesia teeth [None]
  - Tooth fracture [None]
  - Tooth loss [None]
  - Gingival disorder [None]
  - Tooth disorder [None]
  - Gingival discomfort [None]
  - Tooth erosion [None]
  - Oral pain [None]
  - Gingival erythema [None]
  - Gingival pain [None]

NARRATIVE: CASE EVENT DATE: 2016
